FAERS Safety Report 21375590 (Version 1)
Quarter: 2022Q3

REPORT INFORMATION
  Report Type: Spontaneous
  Country: US (occurrence: None)
  Receive Date: 20220923
  Receipt Date: 20220923
  Transmission Date: 20221026
  Serious: No
  Sender: FDA-Public Use
  Company Number: None

PATIENT
  Age: 62 Year
  Sex: Female
  Weight: 80.1 kg

DRUGS (1)
  1. XIIDRA [Suspect]
     Active Substance: LIFITEGRAST
     Indication: Corneal disorder
     Dosage: OTHER QUANTITY : 1 DROP(S);?OTHER FREQUENCY : CAN^T REMEMBER;?
     Route: 047
     Dates: start: 20210908, end: 20210912

REACTIONS (2)
  - Taste disorder [None]
  - Nausea [None]

NARRATIVE: CASE EVENT DATE: 20220908
